FAERS Safety Report 15363657 (Version 1)
Quarter: 2018Q3

REPORT INFORMATION
  Report Type: Report from Study
  Country: KR (occurrence: KR)
  Receive Date: 20180907
  Receipt Date: 20180907
  Transmission Date: 20181010
  Serious: Yes (Other)
  Sender: FDA-Public Use
  Company Number: KR-TAKEDA-2018TUS026665

PATIENT
  Age: 40 Year
  Sex: Female
  Weight: 58 kg

DRUGS (9)
  1. VORTIOXETINE. [Suspect]
     Active Substance: VORTIOXETINE
     Indication: MAJOR DEPRESSION
     Dosage: 5 MG, BID
     Route: 065
     Dates: start: 20170713, end: 20170816
  2. BUSPIRONE [Concomitant]
     Active Substance: BUSPIRONE HYDROCHLORIDE
     Indication: ANXIETY
     Dosage: 5 MG, BID
     Route: 048
     Dates: start: 20171012
  3. CLOBAZAM [Concomitant]
     Active Substance: CLOBAZAM
     Indication: ANXIETY
     Dosage: 5 MG, BID
     Route: 048
     Dates: end: 20170816
  4. LYRICA [Concomitant]
     Active Substance: PREGABALIN
     Indication: PROPHYLAXIS
     Dosage: 75 MG, QD
     Route: 048
     Dates: start: 20170810, end: 20170824
  5. ALPRAZOLAM. [Concomitant]
     Active Substance: ALPRAZOLAM
     Indication: ANXIETY
     Dosage: 0.5 MG, BID
     Route: 048
  6. VORTIOXETINE. [Suspect]
     Active Substance: VORTIOXETINE
     Dosage: 10 MG, BID
     Route: 065
     Dates: start: 20170817
  7. CELECOXIB. [Concomitant]
     Active Substance: CELECOXIB
     Indication: PROPHYLAXIS
     Dosage: 200 MG, BID
     Route: 048
     Dates: start: 20170810, end: 20170824
  8. TOFISOPAM [Concomitant]
     Active Substance: TOFISOPAM
     Indication: ANXIETY
     Dosage: 25 MG, QD
     Route: 048
     Dates: start: 20170817
  9. TIANEPTINE [Concomitant]
     Active Substance: TIANEPTINE
     Indication: MAJOR DEPRESSION
     Dosage: 12.5 MG, BID
     Route: 048
     Dates: end: 20170712

REACTIONS (3)
  - Drug ineffective [Unknown]
  - Product use issue [Unknown]
  - Neurogenic bladder [Recovered/Resolved]

NARRATIVE: CASE EVENT DATE: 20170810
